FAERS Safety Report 23764513 (Version 1)
Quarter: 2024Q2

REPORT INFORMATION
  Report Type: Spontaneous
  Country: US (occurrence: US)
  Receive Date: 20240420
  Receipt Date: 20240420
  Transmission Date: 20240716
  Serious: Yes (Other)
  Sender: FDA-Public Use
  Company Number: US-SA-SAC20240229001500

PATIENT
  Age: 44 Year
  Sex: Female

DRUGS (19)
  1. DUPIXENT [Suspect]
     Active Substance: DUPILUMAB
     Indication: Asthma
     Dosage: 300 MG, QOW
     Route: 058
     Dates: start: 202402
  2. TYLENOL [Concomitant]
     Active Substance: ACETAMINOPHEN
     Indication: Pyrexia
  3. ALBUTEROL [Concomitant]
     Active Substance: ALBUTEROL
     Indication: Asthma
  4. XANAX [Concomitant]
     Active Substance: ALPRAZOLAM
  5. LIPITOR [Concomitant]
     Active Substance: ATORVASTATIN CALCIUM
  6. BELSOMRA [Concomitant]
     Active Substance: SUVOREXANT
  7. SYMBICORT [Concomitant]
     Active Substance: BUDESONIDE\FORMOTEROL FUMARATE DIHYDRATE
     Indication: Asthma
  8. CELEBREX [Concomitant]
     Active Substance: CELECOXIB
  9. CEFIXIME [Concomitant]
     Active Substance: CEFIXIME
  10. FLONASE [Concomitant]
     Active Substance: FLUTICASONE PROPIONATE
  11. DUONEB [Concomitant]
     Active Substance: ALBUTEROL SULFATE\IPRATROPIUM BROMIDE
     Indication: Asthma
  12. SINGULAIR [Concomitant]
     Active Substance: MONTELUKAST SODIUM
  13. OXTELLAR XR [Concomitant]
     Active Substance: OXCARBAZEPINE
  14. OMEPRAZOLE [Concomitant]
     Active Substance: OMEPRAZOLE
  15. LYRICA [Concomitant]
     Active Substance: PREGABALIN
  16. SEROQUEL [Concomitant]
     Active Substance: QUETIAPINE FUMARATE
  17. REQUIP [Concomitant]
     Active Substance: ROPINIROLE HYDROCHLORIDE
  18. TRAMADOL [Concomitant]
     Active Substance: TRAMADOL\TRAMADOL HYDROCHLORIDE
  19. CALAN [VINPOCETINE] [Concomitant]
     Indication: Hypertension

REACTIONS (10)
  - Cough [Unknown]
  - Dyspnoea [Unknown]
  - Wheezing [Unknown]
  - Secretion discharge [Unknown]
  - Pyrexia [Unknown]
  - Chills [Unknown]
  - Chest pain [Unknown]
  - Palpitations [Unknown]
  - Tissue infiltration [Unknown]
  - Pneumonia [Unknown]

NARRATIVE: CASE EVENT DATE: 20240207
